FAERS Safety Report 17057821 (Version 1)
Quarter: 2019Q4

REPORT INFORMATION
  Report Type: Spontaneous
  Country: US (occurrence: US)
  Receive Date: 20191120
  Receipt Date: 20191120
  Transmission Date: 20200122
  Serious: No
  Sender: FDA-Public Use
  Company Number: None

PATIENT
  Age: 26 Year
  Sex: Female
  Weight: 60.75 kg

DRUGS (3)
  1. KIRKLAND SIGNATURE ALLER TEC ALLERGY [Suspect]
     Active Substance: CETIRIZINE HYDROCHLORIDE
     Indication: RHINITIS ALLERGIC
     Dosage: ?          QUANTITY:365 TABLET(S);?
     Route: 048
  2. KIRKLAND SIGNATURE ALLER TEC ALLERGY [Suspect]
     Active Substance: CETIRIZINE HYDROCHLORIDE
     Indication: URTICARIA
     Dosage: ?          QUANTITY:365 TABLET(S);?
     Route: 048
  3. FLORAJEN FOR WOMEN [Concomitant]

REACTIONS (5)
  - Contusion [None]
  - Pruritus [None]
  - Drug dependence [None]
  - Haemorrhage [None]
  - Impaired work ability [None]

NARRATIVE: CASE EVENT DATE: 20191117
